FAERS Safety Report 6996154-3 (Version None)
Quarter: 2010Q3

REPORT INFORMATION
  Report Type: 
  Country: None (occurrence: None)
  Receive Date: 20100918
  Receipt Date: 20090108
  Transmission Date: 20110219
  Serious: No
  Sender: FDA-Public Use
  Company Number: US-WYE-H07646909

PATIENT

DRUGS (1)
  1. ADVIL COLD AND SINUS [Suspect]
     Dosage: UNKNOWN
     Route: 048

REACTIONS (2)
  - FEELING JITTERY [None]
  - INSOMNIA [None]
